FAERS Safety Report 19373291 (Version 1)
Quarter: 2021Q2

REPORT INFORMATION
  Report Type: Report from Study
  Country: JP (occurrence: JP)
  Receive Date: 20210603
  Receipt Date: 20210603
  Transmission Date: 20210717
  Serious: Yes (Hospitalization)
  Sender: FDA-Public Use
  Company Number: JP-ROCHE-1860941

PATIENT
  Age: 68 Year
  Sex: Male
  Weight: 62 kg

DRUGS (33)
  1. ETOPOSIDE. [Suspect]
     Active Substance: ETOPOSIDE
     Indication: SMALL CELL LUNG CANCER EXTENSIVE STAGE
     Dosage: MOST RECENT DOSE PRIOR TO AE ONSET: 24/NOV/2016, 164 MG AT 10 30
     Route: 042
     Dates: start: 20161122
  2. FEBUXOSTAT. [Concomitant]
     Active Substance: FEBUXOSTAT
     Indication: HYPERURICAEMIA
     Route: 048
     Dates: start: 20161121, end: 20170213
  3. TELMISARTAN. [Concomitant]
     Active Substance: TELMISARTAN
     Indication: HYPERTENSION
     Route: 048
     Dates: start: 20161121, end: 20161201
  4. ULTIBRO BREEZHALER [Concomitant]
     Active Substance: GLYCOPYRRONIUM\INDACATEROL
     Indication: EMPHYSEMA
     Route: 055
     Dates: start: 20161122
  5. NEXIUM [Concomitant]
     Active Substance: ESOMEPRAZOLE MAGNESIUM
     Route: 048
     Dates: start: 20161202
  6. PITAVASTATIN CALCIUM [Concomitant]
     Active Substance: PITAVASTATIN CALCIUM
     Indication: HYPERLIPIDAEMIA
     Route: 048
     Dates: end: 20161120
  7. FILGRASTIM BS [Concomitant]
     Active Substance: FILGRASTIM
     Indication: NEUTROPHIL COUNT DECREASED
     Dosage: 1 OTHER
     Route: 058
     Dates: start: 20161205, end: 20161208
  8. WHITE PETROLATUM [Concomitant]
     Active Substance: PETROLATUM
     Indication: CHEILITIS
     Dosage: UNKNOWN
     Route: 061
     Dates: start: 20161209, end: 20161215
  9. PALONOSETRON. [Concomitant]
     Active Substance: PALONOSETRON HYDROCHLORIDE
     Dates: start: 20161122, end: 20161122
  10. URIADEC [Concomitant]
     Active Substance: TOPIROXOSTAT
     Indication: HYPERURICAEMIA
     Route: 048
     Dates: end: 20161120
  11. AVELOX [Concomitant]
     Active Substance: MOXIFLOXACIN HYDROCHLORIDE
     Route: 048
     Dates: start: 20161113, end: 20161120
  12. MAGMITT [Concomitant]
     Active Substance: MAGNESIUM OXIDE
     Indication: CONSTIPATION
     Route: 048
     Dates: end: 20161201
  13. SPIRIVA RESPIMAT [Concomitant]
     Active Substance: TIOTROPIUM BROMIDE
     Indication: EMPHYSEMA
     Route: 055
     Dates: start: 20161113, end: 20161121
  14. SPIOLTO RESPIMAT [Concomitant]
     Active Substance: OLODATEROL HYDROCHLORIDE\TIOTROPIUM BROMIDE MONOHYDRATE
     Indication: EMPHYSEMA
     Route: 055
     Dates: start: 20161008, end: 20161112
  15. AMITIZA [Concomitant]
     Active Substance: LUBIPROSTONE
     Indication: CONSTIPATION
     Route: 048
     Dates: start: 20161125, end: 20161130
  16. KETOPROFEN. [Concomitant]
     Active Substance: KETOPROFEN
     Indication: MUSCULOSKELETAL STIFFNESS
     Route: 061
     Dates: start: 20161123, end: 20161123
  17. PITAVASTATIN. [Concomitant]
     Active Substance: PITAVASTATIN CALCIUM
  18. ATEZOLIZUMAB. [Suspect]
     Active Substance: ATEZOLIZUMAB
     Indication: SMALL CELL LUNG CANCER EXTENSIVE STAGE
     Dosage: MOST RECENT DOSE PRIOR TO AE ONSET: 22/NOV/2016 AT 09 55
     Route: 042
     Dates: start: 20161122
  19. DEXAMETHASONE. [Concomitant]
     Active Substance: DEXAMETHASONE
     Dates: start: 20161123, end: 20161124
  20. AMLODIPINE [Concomitant]
     Active Substance: AMLODIPINE BESYLATE
     Indication: HYPERTENSION
  21. DEXART [Concomitant]
     Active Substance: DEXAMETHASONE SODIUM PHOSPHATE
     Indication: PROPHYLAXIS OF NAUSEA AND VOMITING
     Dates: start: 20161122
  22. LIVALO [Concomitant]
     Active Substance: PITAVASTATIN CALCIUM
     Indication: HYPERLIPIDAEMIA
     Route: 048
     Dates: start: 20161121, end: 20170213
  23. ALOXI [Concomitant]
     Active Substance: PALONOSETRON HYDROCHLORIDE
     Route: 042
     Dates: start: 20161122, end: 20161122
  24. CARBOPLATIN. [Suspect]
     Active Substance: CARBOPLATIN
     Indication: SMALL CELL LUNG CANCER EXTENSIVE STAGE
     Dosage: AUC OF 5 MG/ML/MIN. MOST RECENT DOSE PRIOR TO AE ONSET: 22/NOV/2016 AT 11 35, 438 MG
     Route: 042
     Dates: start: 20161122
  25. DEXAMETHASONE. [Concomitant]
     Active Substance: DEXAMETHASONE
     Dates: start: 20161122, end: 20161122
  26. DEXART [Concomitant]
     Active Substance: DEXAMETHASONE SODIUM PHOSPHATE
     Dates: start: 20161123, end: 20161124
  27. VALSARTAN. [Concomitant]
     Active Substance: VALSARTAN
     Indication: HYPERTENSION
     Route: 048
     Dates: start: 20161120
  28. RABEPRAZOLE NA [Concomitant]
     Active Substance: RABEPRAZOLE SODIUM
     Route: 048
     Dates: start: 20161115
  29. RAMOSETRON HYDROCHLORIDE [Concomitant]
     Active Substance: RAMOSETRON HYDROCHLORIDE
     Indication: NAUSEA
     Route: 048
     Dates: start: 20161125, end: 20161125
  30. METOCLOPRAMIDE. [Concomitant]
     Active Substance: METOCLOPRAMIDE
     Indication: NAUSEA
     Route: 048
     Dates: start: 20161125, end: 20161130
  31. AMLODIPINE [Concomitant]
     Active Substance: AMLODIPINE BESYLATE
     Route: 048
     Dates: end: 20161201
  32. LANSOPRAZOLE. [Concomitant]
     Active Substance: LANSOPRAZOLE
     Route: 048
     Dates: start: 20161125, end: 20161201
  33. SENNOSIDE [Concomitant]
     Active Substance: SENNOSIDES
     Indication: CONSTIPATION
     Route: 048
     Dates: start: 20161123, end: 20161123

REACTIONS (1)
  - Pancreatitis acute [Recovered/Resolved]

NARRATIVE: CASE EVENT DATE: 20161125
